FAERS Safety Report 5560441-6 (Version None)
Quarter: 2007Q4

REPORT INFORMATION
  Report Type: 
  Country: None (occurrence: None)
  Receive Date: 20071215
  Receipt Date: 20071109
  Transmission Date: 20080405
  Serious: No
  Sender: FDA-Public Use
  Company Number: US-ABBOTT-07P-163-0424414-00

PATIENT
  Sex: Male
  Weight: 59.928 kg

DRUGS (12)
  1. HUMIRA [Suspect]
     Indication: CROHN'S DISEASE
     Route: 058
     Dates: start: 20071106
  2. HUMIRA [Suspect]
     Route: 058
     Dates: start: 20071022, end: 20071022
  3. IBUPROFEN [Concomitant]
     Indication: DRUG USE FOR UNKNOWN INDICATION
  4. ENDOCORT [Concomitant]
     Indication: DRUG USE FOR UNKNOWN INDICATION
  5. FLUOXETINE HYDROCHLORIDE [Concomitant]
     Indication: DRUG USE FOR UNKNOWN INDICATION
  6. ESOMEPRAZOLE MAGNESIUM [Concomitant]
     Indication: DRUG USE FOR UNKNOWN INDICATION
  7. AQUA TAB D [Concomitant]
     Indication: DRUG USE FOR UNKNOWN INDICATION
  8. FEXOFENADINE [Concomitant]
     Indication: DRUG USE FOR UNKNOWN INDICATION
  9. ROPINIROLE HCL [Concomitant]
     Indication: DRUG USE FOR UNKNOWN INDICATION
  10. AMITRIPTLINE HCL [Concomitant]
     Indication: FIBROMYALGIA
  11. TERIPARATIDE [Concomitant]
     Indication: OSTEOPOROSIS
  12. ACTONEL [Concomitant]
     Indication: OSTEOPOROSIS

REACTIONS (8)
  - CHEST PAIN [None]
  - COUGH [None]
  - ERYTHEMA [None]
  - JOINT SWELLING [None]
  - JOINT WARMTH [None]
  - PYREXIA [None]
  - RESPIRATORY TRACT CONGESTION [None]
  - SINUS CONGESTION [None]
